FAERS Safety Report 7271539-9 (Version None)
Quarter: 2011Q1

REPORT INFORMATION
  Report Type: 
  Country: None (occurrence: None)
  Receive Date: 20110203
  Receipt Date: 20110119
  Transmission Date: 20110831
  Serious: Yes (Hospitalization)
  Sender: FDA-Public Use
  Company Number: GB-RANBAXY-2011R1-41362

PATIENT
  Age: 85 Year
  Sex: Female

DRUGS (1)
  1. AMOXICILLIN [Suspect]
     Indication: PRODUCT USED FOR UNKNOWN INDICATION
     Dosage: UNK MG, UNK
     Route: 048
     Dates: start: 20101231, end: 20110104

REACTIONS (2)
  - SWOLLEN TONGUE [None]
  - ANGIOEDEMA [None]
